FAERS Safety Report 8549475-7 (Version None)
Quarter: 2012Q3

REPORT INFORMATION
  Report Type: 
  Country: None (occurrence: None)
  Receive Date: 20120730
  Receipt Date: 20120723
  Transmission Date: 20120928
  Serious: Yes (Hospitalization)
  Sender: FDA-Public Use
  Company Number: IT-ROCHE-1091894

PATIENT
  Sex: Female

DRUGS (4)
  1. MEDROL [Concomitant]
     Route: 048
  2. SERACTIL [Concomitant]
     Route: 048
  3. ACTEMRA [Suspect]
     Indication: RHEUMATOID ARTHRITIS
     Route: 042
     Dates: start: 20100507, end: 20101203
  4. METHOTREXATE [Concomitant]

REACTIONS (2)
  - ACUTE CORONARY SYNDROME [None]
  - ATRIAL FIBRILLATION [None]
